FAERS Safety Report 7213717-0 (Version None)
Quarter: 2011Q1

REPORT INFORMATION
  Report Type: 
  Country: None (occurrence: None)
  Receive Date: 20110106
  Receipt Date: 20110101
  Transmission Date: 20110831
  Serious: Yes (Other)
  Sender: FDA-Public Use
  Company Number: US-JNJCH-2011000105

PATIENT
  Sex: Female

DRUGS (1)
  1. VISINE TOTALITY MULTI-SYMPTOM RELIEF [Suspect]
     Indication: PRODUCT USED FOR UNKNOWN INDICATION
     Dosage: TEXT:UNKNOWN
     Route: 047

REACTIONS (1)
  - BLINDNESS TRANSIENT [None]
